FAERS Safety Report 16917663 (Version 1)
Quarter: 2019Q4

REPORT INFORMATION
  Report Type: Report from Study
  Country: None (occurrence: US)
  Receive Date: 20191015
  Receipt Date: 20191015
  Transmission Date: 20200122
  Serious: Yes (Other)
  Sender: FDA-Public Use
  Company Number: US-ABBVIE-19K-163-2903119-00

PATIENT
  Age: 72 Year
  Sex: Female

DRUGS (1)
  1. HUMIRA [Suspect]
     Active Substance: ADALIMUMAB
     Indication: PSORIASIS
     Route: 058
     Dates: start: 2014, end: 201906

REACTIONS (5)
  - Bile duct obstruction [Unknown]
  - Pancreatic carcinoma [Not Recovered/Not Resolved]
  - Ocular icterus [Unknown]
  - Malaise [Unknown]
  - Yellow skin [Unknown]

NARRATIVE: CASE EVENT DATE: 201906
